FAERS Safety Report 15691841 (Version 1)
Quarter: 2018Q4

REPORT INFORMATION
  Report Type: Spontaneous
  Country: NL (occurrence: NL)
  Receive Date: 20181205
  Receipt Date: 20181205
  Transmission Date: 20190205
  Serious: Yes (Death, Hospitalization)
  Sender: FDA-Public Use
  Company Number: NL-JNJFOC-20181118654

PATIENT
  Age: 68 Year
  Sex: Male
  Weight: 87.5 kg

DRUGS (7)
  1. IBRUTINIB [Suspect]
     Active Substance: IBRUTINIB
     Indication: CHRONIC LYMPHOCYTIC LEUKAEMIA
     Route: 048
     Dates: start: 20171024, end: 20181106
  2. METOCLOPRAMIDE. [Concomitant]
     Active Substance: METOCLOPRAMIDE
     Indication: NAUSEA
     Route: 048
     Dates: start: 20180829
  3. AZITHROMYCINE [Concomitant]
     Active Substance: AZITHROMYCIN
     Indication: PYREXIA
     Route: 048
     Dates: start: 20181101, end: 20181104
  4. AZITHROMYCINE [Concomitant]
     Active Substance: AZITHROMYCIN
     Indication: COUGH
     Route: 048
     Dates: start: 20181101, end: 20181104
  5. IBRUTINIB [Suspect]
     Active Substance: IBRUTINIB
     Indication: CHRONIC LYMPHOCYTIC LEUKAEMIA
     Route: 048
     Dates: start: 20170223, end: 20171024
  6. CLOTRIMAZOLE. [Concomitant]
     Active Substance: CLOTRIMAZOLE
     Dosage: 1GM 20 MG
     Route: 042
     Dates: start: 20181108
  7. PANTOPRAZOLE [Concomitant]
     Active Substance: PANTOPRAZOLE
     Indication: GASTROOESOPHAGEAL REFLUX DISEASE
     Route: 048
     Dates: start: 20170323

REACTIONS (2)
  - Respiratory failure [Fatal]
  - Pneumocystis jirovecii pneumonia [Not Recovered/Not Resolved]

NARRATIVE: CASE EVENT DATE: 20181030
